FAERS Safety Report 5910787-4 (Version None)
Quarter: 2008Q4

REPORT INFORMATION
  Report Type: 
  Country: None (occurrence: None)
  Receive Date: 20081007
  Receipt Date: 20080505
  Transmission Date: 20090506
  Serious: No
  Sender: FDA-Public Use
  Company Number: US-ASTRAZENECA-2008UW09111

PATIENT
  Age: 71 Year
  Sex: Female
  Weight: 59 kg

DRUGS (4)
  1. ARIMIDEX [Suspect]
     Indication: BREAST CANCER
     Route: 048
     Dates: start: 20030101
  2. BONIVA [Concomitant]
  3. NORVASC [Concomitant]
  4. LOPRESSOR [Concomitant]

REACTIONS (5)
  - ALOPECIA [None]
  - DRY SKIN [None]
  - HOT FLUSH [None]
  - OSTEOPENIA [None]
  - VULVOVAGINAL DRYNESS [None]
